FAERS Safety Report 6682597-4 (Version None)
Quarter: 2010Q2

REPORT INFORMATION
  Report Type: 
  Country: None (occurrence: None)
  Receive Date: 20100414
  Receipt Date: 20100414
  Transmission Date: 20101027
  Serious: Yes (Hospitalization)
  Sender: FDA-Public Use
  Company Number: None

PATIENT
  Sex: Female
  Weight: 91 kg

DRUGS (2)
  1. CARBOPLATIN [Suspect]
     Dosage: 613 MG
  2. TAXOL [Suspect]
     Dosage: 341 MG

REACTIONS (5)
  - DIZZINESS [None]
  - FEBRILE NEUTROPENIA [None]
  - NAUSEA [None]
  - PAIN [None]
  - VIRAL UPPER RESPIRATORY TRACT INFECTION [None]
